FAERS Safety Report 5158069-5 (Version None)
Quarter: 2006Q4

REPORT INFORMATION
  Report Type: 
  Country: None (occurrence: None)
  Receive Date: 20061112
  Receipt Date: 20061107
  Transmission Date: 20070319
  Serious: Yes (Death)
  Sender: FDA-Public Use
  Company Number: 200610278BBE

PATIENT
  Age: 45 Year
  Sex: Female

DRUGS (1)
  1. GAMIMUNE N 5% [Suspect]

REACTIONS (1)
  - SEPSIS [None]
